FAERS Safety Report 16161916 (Version 1)
Quarter: 2019Q2

REPORT INFORMATION
  Report Type: Spontaneous
  Country: US (occurrence: US)
  Receive Date: 20190228
  Receipt Date: 20190228
  Transmission Date: 20190711
  Serious: Yes (Life-Threatening, Hospitalization, Other)
  Sender: FDA-Public Use
  Company Number: None

PATIENT
  Age: 75 Year
  Sex: Male
  Weight: 90.72 kg

DRUGS (2)
  1. NIVOLUMAB [Suspect]
     Active Substance: NIVOLUMAB
     Indication: METASTATIC MALIGNANT MELANOMA
     Route: 042
     Dates: start: 20180205, end: 20180228
  2. IPILIMUMAB [Suspect]
     Active Substance: IPILIMUMAB
     Indication: METASTATIC MALIGNANT MELANOMA
     Route: 042
     Dates: start: 20180205, end: 20180205

REACTIONS (14)
  - Hyperkalaemia [None]
  - Acidosis [None]
  - Respiratory distress [None]
  - Nausea [None]
  - Pseudomonas infection [None]
  - Influenza [None]
  - Acute respiratory failure [None]
  - Staphylococcal sepsis [None]
  - Diarrhoea [None]
  - Vomiting [None]
  - Hypotension [None]
  - Pneumoperitoneum [None]
  - Cardiac arrest [None]
  - Septic shock [None]

NARRATIVE: CASE EVENT DATE: 20180315
